FAERS Safety Report 4283194-0 (Version None)
Quarter: 2004Q1

REPORT INFORMATION
  Report Type: 
  Country: None (occurrence: None)
  Receive Date: 20040129
  Receipt Date: 20040115
  Transmission Date: 20041129
  Serious: Yes (Hospitalization)
  Sender: FDA-Public Use
  Company Number: 2004003194

PATIENT
  Sex: Female

DRUGS (2)
  1. LOPID [Suspect]
     Indication: ILL-DEFINED DISORDER
     Dosage: 450 MG (DAILY), ORAL
     Route: 048
  2. VI-SIBLIN [Concomitant]

REACTIONS (8)
  - ABDOMINAL PAIN UPPER [None]
  - AGGRESSION [None]
  - DEPRESSION [None]
  - FLATULENCE [None]
  - IRRITABILITY [None]
  - IRRITABLE BOWEL SYNDROME [None]
  - NAUSEA [None]
  - TEARFULNESS [None]
